FAERS Safety Report 10045675 (Version 3)
Quarter: 2014Q2

REPORT INFORMATION
  Report Type: Spontaneous
  Country: KR (occurrence: KR)
  Receive Date: 20140328
  Receipt Date: 20140509
  Transmission Date: 20141212
  Serious: Yes (Other)
  Sender: FDA-Public Use
  Company Number: ALCN2014KR001991

PATIENT
  Age: 46 Year
  Sex: Female

DRUGS (4)
  1. DURATEARS [Suspect]
     Indication: OCULAR DISCOMFORT
     Dosage: 1 DF, QHS
     Route: 047
     Dates: start: 20140321, end: 20140322
  2. DURATEARS [Suspect]
     Indication: VISION BLURRED
  3. HYALURONIC ACID [Concomitant]
     Indication: OCULAR DISCOMFORT
     Dosage: 1 DF, PRN
     Route: 047
     Dates: start: 20140320
  4. HYALURONIC ACID [Concomitant]
     Indication: VISION BLURRED

REACTIONS (5)
  - Corneal oedema [Recovering/Resolving]
  - Corneal deposits [Recovering/Resolving]
  - Uveitis [Recovering/Resolving]
  - Glare [Recovering/Resolving]
  - Eye pain [Recovering/Resolving]
